FAERS Safety Report 17913276 (Version 10)
Quarter: 2020Q3

REPORT INFORMATION
  Report Type: Spontaneous
  Country: US (occurrence: US)
  Receive Date: 20200618
  Receipt Date: 20200825
  Transmission Date: 20201103
  Serious: No
  Sender: FDA-Public Use
  Company Number: US-BIOGEN-2020BI00888088

PATIENT
  Age: 36 Year
  Sex: Female
  Weight: 99.88 kg

DRUGS (7)
  1. LEVETIRACETAM. [Concomitant]
     Active Substance: LEVETIRACETAM
     Route: 065
  2. ASPIRIN. [Suspect]
     Active Substance: ASPIRIN
     Indication: PRODUCT USED FOR UNKNOWN INDICATION
     Route: 048
     Dates: start: 20200613, end: 20200614
  3. ASPIRIN. [Suspect]
     Active Substance: ASPIRIN
     Route: 048
     Dates: start: 20200614, end: 20200615
  4. TECFIDERA [Suspect]
     Active Substance: DIMETHYL FUMARATE
     Indication: MULTIPLE SCLEROSIS
     Dosage: MAINTENANCE DOSE
     Route: 065
     Dates: start: 20200611
  5. ZONISAMIDE. [Suspect]
     Active Substance: ZONISAMIDE
     Indication: PRODUCT USED FOR UNKNOWN INDICATION
     Route: 065
  6. TECFIDERA [Suspect]
     Active Substance: DIMETHYL FUMARATE
     Route: 065
     Dates: start: 20200613
  7. TECFIDERA [Suspect]
     Active Substance: DIMETHYL FUMARATE
     Route: 048
     Dates: start: 20200613

REACTIONS (28)
  - Alopecia [Not Recovered/Not Resolved]
  - Constipation [Unknown]
  - Muscle spasms [Unknown]
  - Heart rate increased [Unknown]
  - Nausea [Unknown]
  - Fatigue [Unknown]
  - Diarrhoea [Unknown]
  - Malaise [Unknown]
  - Weight decreased [Recovered/Resolved with Sequelae]
  - Vomiting [Recovered/Resolved with Sequelae]
  - Flushing [Recovered/Resolved]
  - Eyelids pruritus [Not Recovered/Not Resolved]
  - Stress [Unknown]
  - Irritability [Recovered/Resolved]
  - Drug hypersensitivity [Unknown]
  - Seasonal allergy [Unknown]
  - Mood altered [Recovered/Resolved]
  - Hordeolum [Recovered/Resolved]
  - Abdominal pain lower [Not Recovered/Not Resolved]
  - Eyelid oedema [Not Recovered/Not Resolved]
  - Product dose omission issue [Unknown]
  - Dry skin [Unknown]
  - Anger [Unknown]
  - Malaise [Recovered/Resolved]
  - Crying [Recovered/Resolved]
  - Pruritus [Not Recovered/Not Resolved]
  - Abdominal pain [Not Recovered/Not Resolved]
  - Abdominal pain upper [Recovered/Resolved]

NARRATIVE: CASE EVENT DATE: 202006
